FAERS Safety Report 4980437-2 (Version None)
Quarter: 2006Q2

REPORT INFORMATION
  Report Type: 
  Country: None (occurrence: None)
  Receive Date: 20060424
  Receipt Date: 20060413
  Transmission Date: 20061013
  Serious: Yes (Hospitalization)
  Sender: FDA-Public Use
  Company Number: JP-GLAXOSMITHKLINE-B0420425A

PATIENT
  Age: 23 Year
  Sex: Male
  Weight: 54 kg

DRUGS (3)
  1. LAMOTRIGINE [Suspect]
     Indication: LENNOX-GASTAUT SYNDROME
     Dosage: 100MG TWICE PER DAY
     Route: 048
     Dates: start: 19951009
  2. DEPAKENE [Concomitant]
     Indication: LENNOX-GASTAUT SYNDROME
     Route: 048
  3. DIAPP [Concomitant]
     Indication: LENNOX-GASTAUT SYNDROME
     Route: 054
     Dates: start: 20060412, end: 20060412

REACTIONS (6)
  - C-REACTIVE PROTEIN INCREASED [None]
  - COUGH [None]
  - PNEUMONIA [None]
  - PRODUCTIVE COUGH [None]
  - PYREXIA [None]
  - WHITE BLOOD CELL COUNT INCREASED [None]
